FAERS Safety Report 7208737-6 (Version None)
Quarter: 2010Q4

REPORT INFORMATION
  Report Type: 
  Country: None (occurrence: None)
  Receive Date: 20101222
  Receipt Date: 20101208
  Transmission Date: 20110411
  Serious: Yes (Hospitalization, Other)
  Sender: FDA-Public Use
  Company Number: 1000017641

PATIENT
  Age: 46 Year
  Sex: Female

DRUGS (9)
  1. CITALOPRAM (CITALOPRAM HYDROBROMIDE) [Suspect]
     Indication: DEPRESSION
     Dosage: 20 MG (20 MG,1 IN 1 D),ORAL ; 40 MG (40 MG,1 IN 1 D),ORAL
     Route: 048
     Dates: start: 19981220, end: 19981228
  2. CITALOPRAM (CITALOPRAM HYDROBROMIDE) [Suspect]
     Indication: DEPRESSION
     Dosage: 20 MG (20 MG,1 IN 1 D),ORAL ; 40 MG (40 MG,1 IN 1 D),ORAL
     Route: 048
     Dates: start: 19981229, end: 19990104
  3. CITALOPRAM (CITALOPRAM HYDROBROMIDE) [Suspect]
     Indication: DEPRESSION
     Dosage: 60 MG (60 MG,1 IN 1 D),ORAL
     Route: 048
     Dates: start: 19990105, end: 19990122
  4. METOPROLOL SUCCINATE [Concomitant]
  5. CAPTOHEXAL (CAPTOPRIL) (CAPTOPRIL) [Concomitant]
  6. JODTHYROX (LEVOTHYROXINE SODIUM, POTASSIUM IODIDE) (LEVOTHYROXINE SODI [Concomitant]
  7. PROTHAZIN (PROMETHAZINE HYDROCHLORIDE) (PROMETHAZINE HYDROCHLORIDE) [Concomitant]
  8. TAVOR (LORAZEPAM) (LORAZEPAM) [Concomitant]
  9. LENDORMIN (BROTIZOLAM) (BROTIZOLAM) [Concomitant]

REACTIONS (3)
  - RESTLESSNESS [None]
  - SELF-INJURIOUS IDEATION [None]
  - SUICIDE ATTEMPT [None]
